FAERS Safety Report 12899761 (Version 1)
Quarter: 2016Q4

REPORT INFORMATION
  Report Type: Spontaneous
  Country: US (occurrence: US)
  Receive Date: 20161101
  Receipt Date: 20161101
  Transmission Date: 20170207
  Serious: No
  Sender: FDA-Public Use
  Company Number: US-PFIZER INC-2016504292

PATIENT
  Age: 51 Year
  Sex: Female
  Weight: 52.16 kg

DRUGS (2)
  1. LYRICA [Suspect]
     Active Substance: PREGABALIN
     Indication: NEUROPATHY PERIPHERAL
     Dosage: 150MG CAPSULE, TWICE A DAY
     Route: 048
     Dates: end: 20161015
  2. LYRICA [Suspect]
     Active Substance: PREGABALIN
     Indication: LYME DISEASE

REACTIONS (2)
  - Pain [Not Recovered/Not Resolved]
  - Condition aggravated [Not Recovered/Not Resolved]

NARRATIVE: CASE EVENT DATE: 201610
